FAERS Safety Report 4675898-2 (Version None)
Quarter: 2005Q2

REPORT INFORMATION
  Report Type: 
  Country: None (occurrence: None)
  Receive Date: 20050527
  Receipt Date: 20050517
  Transmission Date: 20051028
  Serious: Yes (Life-Threatening, Hospitalization, Other)
  Sender: FDA-Public Use
  Company Number: US-JNJFOC-20050405035

PATIENT
  Sex: Male

DRUGS (9)
  1. REMICADE [Suspect]
     Route: 042
  2. REMICADE [Suspect]
     Indication: DERMATOMYOSITIS
     Route: 042
  3. PREDNISONE [Concomitant]
  4. PREDNISONE [Concomitant]
  5. PREDNISONE [Concomitant]
  6. HYDROXYCHLOROQUINE SULFATE [Concomitant]
  7. IMURAN [Concomitant]
     Indication: DERMATOMYOSITIS
  8. TYLENOL (CAPLET) [Concomitant]
     Indication: PREMEDICATION
     Route: 049
  9. ALLEGRA [Concomitant]
     Indication: PREMEDICATION
     Route: 049

REACTIONS (21)
  - ANAEMIA [None]
  - BIOPSY BONE MARROW ABNORMAL [None]
  - CATHETER SEPSIS [None]
  - COAGULOPATHY [None]
  - CRYPTOGENIC ORGANIZING PNEUMONIA [None]
  - CUTANEOUS LUPUS ERYTHEMATOSUS [None]
  - CYTOMEGALOVIRUS INFECTION [None]
  - DERMATOMYOSITIS [None]
  - HEPATIC NECROSIS [None]
  - HERPES SIMPLEX [None]
  - HISTOPLASMOSIS [None]
  - HYPONATRAEMIA [None]
  - INAPPROPRIATE ANTIDIURETIC HORMONE SECRETION [None]
  - MYALGIA [None]
  - MYCOBACTERIUM AVIUM COMPLEX INFECTION [None]
  - POLLAKIURIA [None]
  - RASH ERYTHEMATOUS [None]
  - THERAPY NON-RESPONDER [None]
  - THROMBOCYTOPENIA [None]
  - URINARY INCONTINENCE [None]
  - WHITE BLOOD CELL COUNT DECREASED [None]
